FAERS Safety Report 8806327 (Version 1)
Quarter: 2012Q4

REPORT INFORMATION
  Report Type: Spontaneous
  Country: US (occurrence: None)
  Receive Date: 20120919
  Receipt Date: 20120919
  Transmission Date: 20130627
  Serious: Yes (Other)
  Sender: FDA-Public Use
  Company Number: None

PATIENT
  Age: 49 Year
  Sex: Male
  Weight: 69.4 kg

DRUGS (1)
  1. CARVEDILOL [Suspect]
     Route: 048
     Dates: start: 20120725, end: 20120910

REACTIONS (1)
  - Tachycardia [None]
